FAERS Safety Report 7543973-0 (Version None)
Quarter: 2011Q2

REPORT INFORMATION
  Report Type: 
  Country: None (occurrence: None)
  Receive Date: 20110613
  Receipt Date: 20050629
  Transmission Date: 20111010
  Serious: Yes (Other)
  Sender: FDA-Public Use
  Company Number: PHHO2005BR10356

PATIENT
  Sex: Female
  Weight: 58 kg

DRUGS (6)
  1. VITA-E [Concomitant]
  2. ATENOLOL [Concomitant]
     Dosage: 50 MG, QD
  3. DIOVAN HCT [Suspect]
     Indication: HYPERTENSION
     Dosage: 160/12.5 MG, QD
     Route: 048
  4. ATENOLOL [Concomitant]
     Dosage: 75 MG, QD
  5. PLAQUETAL [Concomitant]
  6. HYGROTON [Concomitant]
     Dosage: 12.5 MG, UNK

REACTIONS (2)
  - ANEURYSM [None]
  - OEDEMA PERIPHERAL [None]
